FAERS Safety Report 10371323 (Version 1)
Quarter: 2014Q3

REPORT INFORMATION
  Report Type: Spontaneous
  Country: AU (occurrence: None)
  Receive Date: 20140806
  Receipt Date: 20140806
  Transmission Date: 20150326
  Serious: Yes (Hospitalization)
  Sender: FDA-Public Use
  Company Number: IPC201407-000394

PATIENT
  Age: 68 Year
  Sex: Female

DRUGS (8)
  1. SODIUM PICOSULPHATE (SODIUM PICOSULPHATE) (SODIUM PICOSULPHATE) [Suspect]
     Active Substance: SODIUM PICOSULFATE
  2. MELOXICAM (MELOXICAM) (MELOXICAM) [Suspect]
     Active Substance: MELOXICAM
  3. INDAPAMIDE (INDAPAMIDE) (INDAPAMIDE) [Suspect]
     Active Substance: INDAPAMIDE
     Indication: HYPERTENSION
  4. GLICLAZIDE MR [Concomitant]
     Active Substance: GLICLAZIDE
  5. AMLODIPINE [Concomitant]
     Active Substance: AMLODIPINE BESYLATE
  6. METFORMIN HYDROCHLORIDE (METFORMIN MHYDROCHLORIDE) (METFORMIN) [Suspect]
     Active Substance: METFORMIN HYDROCHLORIDE
     Indication: TYPE 2 DIABETES MELLITUS
  7. ISOPHANE INSULIN [Concomitant]
     Active Substance: INSULIN NOS
  8. IRBESARTAN (IRBESARTAN) (IRBESARTAN) [Suspect]
     Active Substance: IRBESARTAN
     Indication: HYPERTENSION

REACTIONS (5)
  - Lactic acidosis [None]
  - Metabolic acidosis [None]
  - Renal failure acute [None]
  - Blood pressure decreased [None]
  - Dehydration [None]
